FAERS Safety Report 9553507 (Version 1)
Quarter: 2013Q3

REPORT INFORMATION
  Report Type: Spontaneous
  Country: US (occurrence: None)
  Receive Date: 20130724
  Receipt Date: 20130724
  Transmission Date: 20140515
  Serious: Yes (Other)
  Sender: FDA-Public Use
  Company Number: PHEH2011US05225

PATIENT
  Age: 84 Year
  Sex: Female

DRUGS (5)
  1. RECLAST [Suspect]
     Indication: OSTEOPOROSIS
     Dosage: 5MG, ONCE YEARLY, INTRAVENOUS
     Route: 042
     Dates: start: 20110916
  2. PRAVASTATIN (PRAVASTATIN) [Concomitant]
  3. CALCIUM (CALCIUM) [Concomitant]
  4. IRON (IRON) [Concomitant]
  5. VITAMIN C [Concomitant]

REACTIONS (8)
  - Arthralgia [None]
  - Back pain [None]
  - Pain in extremity [None]
  - Oral mucosal blistering [None]
  - Depressed mood [None]
  - Headache [None]
  - Chills [None]
  - Dysphagia [None]
